FAERS Safety Report 15490954 (Version 2)
Quarter: 2018Q4

REPORT INFORMATION
  Report Type: Spontaneous
  Country: FR (occurrence: FR)
  Receive Date: 20181012
  Receipt Date: 20181017
  Transmission Date: 20190205
  Serious: Yes (Hospitalization)
  Sender: FDA-Public Use
  Company Number: FR-BEH-2018095574

PATIENT
  Age: 34 Year
  Sex: Female
  Weight: 74 kg

DRUGS (5)
  1. PRIVIGEN [Suspect]
     Active Substance: HUMAN IMMUNOGLOBULIN G
     Dosage: 30 G, QW
     Route: 042
     Dates: start: 20180901, end: 20180907
  2. DIFFU-K [Concomitant]
     Active Substance: POTASSIUM CHLORIDE
     Dosage: ()
     Route: 065
  3. LOVENOX [Concomitant]
     Active Substance: ENOXAPARIN SODIUM
     Dosage: ()
     Route: 065
  4. PRIVIGEN [Suspect]
     Active Substance: HUMAN IMMUNOGLOBULIN G
     Indication: ALLOIMMUNISATION
     Dosage: 40 G, QW
     Route: 042
     Dates: start: 20180831, end: 20180913
  5. DOLIPRANE [Concomitant]
     Active Substance: ACETAMINOPHEN
     Dosage: ()
     Route: 065

REACTIONS (3)
  - Thrombocytopenia [Recovering/Resolving]
  - Neutropenia [Recovering/Resolving]
  - Pancytopenia [Recovering/Resolving]

NARRATIVE: CASE EVENT DATE: 20180912
